FAERS Safety Report 9296740 (Version 2)
Quarter: 2013Q2

REPORT INFORMATION
  Report Type: Spontaneous
  Country: BE (occurrence: BE)
  Receive Date: 20130517
  Receipt Date: 20130523
  Transmission Date: 20140414
  Serious: Yes (Hospitalization)
  Sender: FDA-Public Use
  Company Number: BE-PFIZER INC-2013152322

PATIENT
  Age: 3 Year
  Sex: Male
  Weight: 16 kg

DRUGS (1)
  1. IBUPROFEN [Suspect]
     Indication: PYREXIA
     Dosage: UNK
     Route: 048
     Dates: start: 20121031

REACTIONS (2)
  - Skin lesion [Recovering/Resolving]
  - Pyrexia [Recovering/Resolving]
